FAERS Safety Report 25016907 (Version 3)
Quarter: 2025Q1

REPORT INFORMATION
  Report Type: Report from Study
  Country: IT (occurrence: IT)
  Receive Date: 20250227
  Receipt Date: 20250315
  Transmission Date: 20250408
  Serious: Yes (Death, Life-Threatening, Other)
  Sender: AUROBINDO
  Company Number: IT-AUROBINDO-AUR-APL-2025-009540

PATIENT
  Age: 27 Year
  Sex: Male
  Weight: 95 kg

DRUGS (3)
  1. OXYCODONE [Suspect]
     Active Substance: OXYCODONE
     Indication: Product used for unknown indication
     Route: 065
  2. ALPRAZOLAM [Suspect]
     Active Substance: ALPRAZOLAM
     Indication: Product used for unknown indication
     Route: 065
  3. OXYCONTIN [Suspect]
     Active Substance: OXYCODONE HYDROCHLORIDE
     Indication: Product used for unknown indication
     Route: 048

REACTIONS (4)
  - Toxicity to various agents [Fatal]
  - Drug abuse [Fatal]
  - Intentional overdose [Fatal]
  - Completed suicide [Fatal]
